FAERS Safety Report 8257009 (Version 3)
Quarter: 2013Q2

REPORT INFORMATION
  Report Type: Spontaneous
  Country: US (occurrence: US)
  Receive Date: 20111121
  Receipt Date: 20130418
  Transmission Date: 20140414
  Serious: Yes (Hospitalization, Other)
  Sender: FDA-Public Use
  Company Number: US-ROCHE-778407

PATIENT
  Age: 22 Year
  Sex: Male
  Weight: 81.72 kg

DRUGS (2)
  1. ACCUTANE [Suspect]
     Indication: ACNE
     Route: 065
     Dates: start: 1991, end: 1992
  2. ACCUTANE [Suspect]
     Route: 065
     Dates: start: 19920128, end: 19931231

REACTIONS (11)
  - Crohn^s disease [Unknown]
  - Pancreatitis [Unknown]
  - Malnutrition [Unknown]
  - Inflammatory bowel disease [Unknown]
  - Colitis ulcerative [Unknown]
  - Emotional distress [Unknown]
  - Intestinal haemorrhage [Unknown]
  - Large intestine polyp [Unknown]
  - Oral candidiasis [Unknown]
  - Iron deficiency anaemia [Unknown]
  - Alanine aminotransferase increased [Unknown]
